FAERS Safety Report 12316875 (Version 1)
Quarter: 2016Q2

REPORT INFORMATION
  Report Type: Report from Study
  Country: FR (occurrence: FR)
  Receive Date: 20160429
  Receipt Date: 20160429
  Transmission Date: 20160815
  Serious: Yes (Hospitalization)
  Sender: FDA-Public Use
  Company Number: FR-ROCHE-1736381

PATIENT
  Age: 69 Year
  Sex: Female
  Weight: 64 kg

DRUGS (22)
  1. GDC-0199 (BCL-2 SELECTIVE INHIBITOR) [Suspect]
     Active Substance: VENETOCLAX
     Indication: NON-HODGKIN^S LYMPHOMA
     Dosage: MOST RECENT DOSE 800 MG OF VENETOCLAX WAS ADMINISTERED ON 25/MAR/2016 PRIOR TO SAE ONSET
     Route: 048
     Dates: start: 20160118
  2. DOXORUBICIN [Suspect]
     Active Substance: DOXORUBICIN
     Indication: NON-HODGKIN^S LYMPHOMA
     Dosage: MOST RECENT DOSE OF DOXORUBICIN 83.6 (UNITS NOT REPORTED) WAS ADMINISTERED ON 21/MAR/2016 AT 19:30 P
     Route: 042
     Dates: start: 20160115
  3. BACTRIM [Concomitant]
     Active Substance: SULFAMETHOXAZOLE\TRIMETHOPRIM
     Indication: INFECTION PROPHYLAXIS
     Route: 065
     Dates: start: 20160111
  4. ZOPHREN [Concomitant]
     Active Substance: ONDANSETRON
     Indication: PROPHYLAXIS OF NAUSEA AND VOMITING
     Route: 065
     Dates: start: 20160229, end: 20160303
  5. MESNA. [Concomitant]
     Active Substance: MESNA
     Route: 065
     Dates: start: 20160321, end: 20160322
  6. PARACETAMOL [Concomitant]
     Active Substance: ACETAMINOPHEN
     Route: 065
     Dates: start: 20160321, end: 20160321
  7. MESNA. [Concomitant]
     Active Substance: MESNA
     Indication: PROPHYLAXIS
     Route: 065
     Dates: start: 20160229, end: 20160229
  8. RITUXIMAB [Suspect]
     Active Substance: RITUXIMAB
     Indication: NON-HODGKIN^S LYMPHOMA
     Dosage: MOST RECENT DOSE OF RITUXIMAB 611 (UNITS NOT REPORTED) WAS ADMINISTERED ON 21/MAR/2016 AT 16:45 PRIO
     Route: 042
     Dates: start: 20160115
  9. VINCRISTINE [Suspect]
     Active Substance: VINCRISTINE
     Indication: NON-HODGKIN^S LYMPHOMA
     Dosage: MOST RECENT DOSE OF VINCRISTINE 2 (UNITS NOT REPORTED) WAS ADMINISTERED ON 21/MAR/2016 AT 20:25 PRIO
     Route: 042
     Dates: start: 20160115
  10. NEUPOGEN [Concomitant]
     Active Substance: FILGRASTIM
     Indication: PROPHYLAXIS
     Route: 065
     Dates: start: 20160325
  11. ZELITREX [Concomitant]
     Active Substance: VALACYCLOVIR HYDROCHLORIDE
     Indication: INFECTION PROPHYLAXIS
     Route: 065
     Dates: start: 20160111
  12. POLARAMINE [Concomitant]
     Active Substance: DEXCHLORPHENIRAMINE MALEATE
     Indication: PREMEDICATION
     Route: 065
     Dates: start: 20160229, end: 20160229
  13. PARACETAMOL [Concomitant]
     Active Substance: ACETAMINOPHEN
     Indication: PREMEDICATION
     Route: 065
     Dates: start: 20160229, end: 20160229
  14. METHOTREXATE [Concomitant]
     Active Substance: METHOTREXATE
     Indication: PROPHYLAXIS
     Route: 037
     Dates: start: 20160321, end: 20160321
  15. ZOPHREN [Concomitant]
     Active Substance: ONDANSETRON
     Route: 065
     Dates: start: 20160321, end: 20160322
  16. POLARAMINE [Concomitant]
     Active Substance: DEXCHLORPHENIRAMINE MALEATE
     Route: 065
     Dates: start: 20160321, end: 20160321
  17. LEDERFOLINE [Concomitant]
     Active Substance: LEUCOVORIN CALCIUM
     Indication: PROPHYLAXIS
     Route: 065
     Dates: start: 20160111
  18. ADENOSINE. [Concomitant]
     Active Substance: ADENOSINE
     Indication: TACHYCARDIA
     Route: 065
     Dates: start: 20160308, end: 20160308
  19. LYSANXIA [Concomitant]
     Active Substance: PRAZEPAM
     Indication: ANXIETY
  20. CYCLOPHOSPHAMIDE. [Suspect]
     Active Substance: CYCLOPHOSPHAMIDE
     Indication: NON-HODGKIN^S LYMPHOMA
     Dosage: MOST RECENT DOSE OF CYCLOPHOSPHAMIDE 1252 (UNITS NOT REPORTED) WAS ADMINISTERED ON 21/MAR/2016 AT 21
     Route: 042
     Dates: start: 20160115
  21. PREDNISONE. [Suspect]
     Active Substance: PREDNISONE
     Indication: NON-HODGKIN^S LYMPHOMA
     Dosage: MOST RECENT DOSE OF PREDNISONE 100 (UNITS NOT REPORTED)  WAS ADMINISTERED ON 25/MAR/2016 PRIOR TO SA
     Route: 065
     Dates: start: 20160115
  22. ORACILLINE [Concomitant]
     Active Substance: PENICILLIN V
     Indication: INFECTION PROPHYLAXIS
     Route: 065
     Dates: start: 20160111

REACTIONS (1)
  - Supraventricular tachycardia [Recovered/Resolved]

NARRATIVE: CASE EVENT DATE: 20160325
